FAERS Safety Report 12909051 (Version 1)
Quarter: 2016Q4

REPORT INFORMATION
  Report Type: Spontaneous
  Country: US (occurrence: US)
  Receive Date: 20161103
  Receipt Date: 20161103
  Transmission Date: 20170207
  Serious: No
  Sender: FDA-Public Use
  Company Number: US-JAZZ-2016-US-016838

PATIENT

DRUGS (8)
  1. XYREM [Suspect]
     Active Substance: SODIUM OXYBATE
     Dosage: 3 G, BID(HER TAKING THE WEEKENDS OFF)
     Route: 048
     Dates: start: 201608
  2. TURMERIC [Concomitant]
     Active Substance: TURMERIC
  3. XYREM [Suspect]
     Active Substance: SODIUM OXYBATE
     Indication: NARCOLEPSY
     Dosage: 2.25 G, BID
     Route: 048
     Dates: start: 201608, end: 201608
  4. RESTASIS [Concomitant]
     Active Substance: CYCLOSPORINE
  5. ZOLADEX [Concomitant]
     Active Substance: GOSERELIN ACETATE
  6. TAMOXIFEN [Concomitant]
     Active Substance: TAMOXIFEN
  7. NUVIGIL [Concomitant]
     Active Substance: ARMODAFINIL
  8. HAIR, SKIN + NAILS [Concomitant]
     Active Substance: MINERALS\VITAMINS

REACTIONS (1)
  - Feeling abnormal [Unknown]

NARRATIVE: CASE EVENT DATE: 2016
